FAERS Safety Report 6149709-2 (Version None)
Quarter: 2009Q2

REPORT INFORMATION
  Report Type: 
  Country: None (occurrence: None)
  Receive Date: 20090409
  Receipt Date: 20090309
  Transmission Date: 20091009
  Serious: No
  Sender: FDA-Public Use
  Company Number: US-BAYER-200915144NA

PATIENT
  Age: 71 Year
  Sex: Female
  Weight: 57 kg

DRUGS (2)
  1. MENOSTAR [Suspect]
     Indication: HOT FLUSH
     Dosage: CONTINUOUS DELIVERY FOR ONCE WEEKLY APPLICATION
     Route: 062
     Dates: start: 20080101
  2. CRESTOR [Concomitant]

REACTIONS (4)
  - APPLICATION SITE REACTION [None]
  - BURNING SENSATION [None]
  - NO ADVERSE EVENT [None]
  - SKIN IRRITATION [None]
